FAERS Safety Report 5011821-9 (Version None)
Quarter: 2006Q2

REPORT INFORMATION
  Report Type: 
  Country: None (occurrence: None)
  Receive Date: 20060526
  Receipt Date: 20060320
  Transmission Date: 20061013
  Serious: Yes (Death)
  Sender: FDA-Public Use
  Company Number: US-AVENTIS-200612794US

PATIENT
  Age: 53 Year
  Sex: Male

DRUGS (5)
  1. RIFAMPIN [Suspect]
     Indication: TUBERCULOSIS
     Dates: start: 20000804, end: 20000908
  2. PYRAZINAMIDE [Suspect]
     Indication: TUBERCULOSIS
     Dates: start: 20000804, end: 20000908
  3. NIFEDIPINE [Concomitant]
     Dosage: DOSE: UNK
  4. HYDROCHLOROTHIAZIDE [Concomitant]
     Dosage: DOSE: UNK
  5. ECOTRIN [Concomitant]
     Dosage: DOSE: UNK

REACTIONS (10)
  - ALANINE AMINOTRANSFERASE INCREASED [None]
  - ANOREXIA [None]
  - ASPARTATE AMINOTRANSFERASE INCREASED [None]
  - BLOOD ALKALINE PHOSPHATASE INCREASED [None]
  - BLOOD BILIRUBIN INCREASED [None]
  - FATIGUE [None]
  - HEPATIC FAILURE [None]
  - HEPATIC NECROSIS [None]
  - NAUSEA [None]
  - VOMITING [None]
